FAERS Safety Report 5820400-2 (Version None)
Quarter: 2008Q3

REPORT INFORMATION
  Report Type: 
  Country: None (occurrence: None)
  Receive Date: 20080724
  Receipt Date: 20070802
  Transmission Date: 20090109
  Serious: No
  Sender: FDA-Public Use
  Company Number: A0660314A

PATIENT
  Age: 58 Year
  Sex: Male

DRUGS (7)
  1. AVANDIA [Suspect]
     Dosage: 4MG PER DAY
     Route: 048
     Dates: start: 20060601, end: 20070502
  2. LANTUS [Concomitant]
  3. GLUCOPHAGE [Concomitant]
  4. HUMALOG [Concomitant]
  5. LIPITOR [Concomitant]
  6. ZESTRIL [Concomitant]
  7. ASPIRIN [Concomitant]

REACTIONS (6)
  - ABDOMINAL PAIN [None]
  - DIARRHOEA [None]
  - ILL-DEFINED DISORDER [None]
  - OEDEMA PERIPHERAL [None]
  - PRURITUS [None]
  - TREMOR [None]
